FAERS Safety Report 6558811-2 (Version None)
Quarter: 2010Q1

REPORT INFORMATION
  Report Type: 
  Country: None (occurrence: None)
  Receive Date: 20100129
  Receipt Date: 20100118
  Transmission Date: 20100710
  Serious: Yes (Other)
  Sender: FDA-Public Use
  Company Number: PHHY2010US02697

PATIENT
  Sex: Female

DRUGS (9)
  1. DIOVAN [Suspect]
  2. DIURETICS [Suspect]
  3. ZOCOR [Concomitant]
  4. SYNTHROID [Concomitant]
  5. BABY ASPIRIN [Concomitant]
  6. CENTRUM [Concomitant]
  7. COQ10 [Concomitant]
  8. VITAMIN D [Concomitant]
  9. ACIDOPHILUS [Concomitant]

REACTIONS (6)
  - BLOOD PRESSURE INCREASED [None]
  - CONSTIPATION [None]
  - GASTROINTESTINAL DISORDER [None]
  - HAEMORRHOIDS [None]
  - SURGERY [None]
  - WEIGHT DECREASED [None]
